FAERS Safety Report 16535820 (Version 1)
Quarter: 2019Q3

REPORT INFORMATION
  Report Type: Report from Study
  Country: US (occurrence: US)
  Receive Date: 20190705
  Receipt Date: 20190705
  Transmission Date: 20191004
  Serious: Yes (Other)
  Sender: FDA-Public Use
  Company Number: US-ROCHE-2350224

PATIENT

DRUGS (5)
  1. BEVACIZUMAB. [Suspect]
     Active Substance: BEVACIZUMAB
     Indication: PANCREATIC CARCINOMA
     Dosage: ON DAYS 1 AND 15
     Route: 042
  2. OXALIPLATIN. [Suspect]
     Active Substance: OXALIPLATIN
     Indication: PANCREATIC CARCINOMA
     Dosage: OVER 60 MIN ON DAYS 1, 8, AND 15
     Route: 042
  3. 5-FU [FLUOROURACIL] [Suspect]
     Active Substance: FLUOROURACIL
     Indication: PANCREATIC CARCINOMA
     Dosage: CONTINUOUS INFUSION ON DAYS 1-15 VIA AN AMBULATORY CHEMOTHERAPY PUMP INTO A SURGICALLY PLACED CENTRA
     Route: 042
  4. NAB-PACLITAXEL [Suspect]
     Active Substance: PACLITAXEL
     Indication: PANCREATIC CARCINOMA
     Dosage: AS A 30-MIN IV INFUSION
     Route: 042
  5. CALCIUM LEUCOVORIN [Suspect]
     Active Substance: LEUCOVORIN CALCIUM
     Indication: PANCREATIC CARCINOMA
     Route: 040

REACTIONS (2)
  - Hypertension [Recovered/Resolved]
  - Haemolytic uraemic syndrome [Recovered/Resolved]
